FAERS Safety Report 15789516 (Version 2)
Quarter: 2019Q1

REPORT INFORMATION
  Report Type: Spontaneous
  Country: US (occurrence: US)
  Receive Date: 20190104
  Receipt Date: 20190211
  Transmission Date: 20190417
  Serious: Yes (Other)
  Sender: FDA-Public Use
  Company Number: US-BAYER-2019-002638

PATIENT
  Age: 43 Year
  Sex: Female
  Weight: 63.95 kg

DRUGS (2)
  1. MIRENA [Suspect]
     Active Substance: LEVONORGESTREL
     Indication: CONTRACEPTION
  2. MIRENA [Suspect]
     Active Substance: LEVONORGESTREL
     Indication: CONTRACEPTION
     Dosage: 20 MCG/24HR, CONT
     Route: 015
     Dates: start: 20181126, end: 20181126

REACTIONS (5)
  - Device use issue [None]
  - Complication of device insertion [None]
  - Procedural haemorrhage [None]
  - Complication associated with device [None]
  - Uterine spasm [None]

NARRATIVE: CASE EVENT DATE: 20181126
